FAERS Safety Report 7823838-7 (Version None)
Quarter: 2011Q4

REPORT INFORMATION
  Report Type: 
  Country: None (occurrence: None)
  Receive Date: 20111019
  Receipt Date: 20110808
  Transmission Date: 20120403
  Serious: No
  Sender: FDA-Public Use
  Company Number: US-ASTRAZENECA-2011SE47226

PATIENT
  Age: 68 Year
  Sex: Female

DRUGS (6)
  1. LOVASTATIN [Concomitant]
  2. SYMBICORT [Suspect]
     Indication: DYSPNOEA
     Route: 055
  3. ASPIRIN [Concomitant]
  4. VITAMIN B-12 [Concomitant]
     Dosage: MONTHLY
  5. FISH OIL [Concomitant]
  6. LEVOTHYROXINE SODIUM [Concomitant]
     Indication: THYROID DISORDER

REACTIONS (3)
  - MALAISE [None]
  - WRONG TECHNIQUE IN DRUG USAGE PROCESS [None]
  - DYSPNOEA [None]
